FAERS Safety Report 8192339-1 (Version None)
Quarter: 2012Q1

REPORT INFORMATION
  Report Type: 
  Country: None (occurrence: None)
  Receive Date: 20120307
  Receipt Date: 20120229
  Transmission Date: 20120608
  Serious: Yes (Death, Hospitalization, Other)
  Sender: FDA-Public Use
  Company Number: FR-BRISTOL-MYERS SQUIBB COMPANY-16426751

PATIENT
  Age: 83 Year
  Sex: Male

DRUGS (10)
  1. COUMADIN [Suspect]
     Indication: ATRIAL FIBRILLATION
     Dosage: RESTARTED ON 11-NOV-2011 AND STOPPED.
     Route: 048
  2. ALLOPURINOL [Concomitant]
  3. RULID [Concomitant]
  4. ACETAMINOPHEN [Concomitant]
  5. LEVOTHYROXINE SODIUM [Concomitant]
  6. POTASSIUM CHLORIDE [Concomitant]
  7. SYMBICORT [Concomitant]
  8. HYPERTENSION MEDICATION [Concomitant]
  9. SIMVASTATIN [Concomitant]
  10. LEXOMIL [Concomitant]

REACTIONS (4)
  - GASTROINTESTINAL HAEMORRHAGE [None]
  - SCIATICA [None]
  - INTERNATIONAL NORMALISED RATIO INCREASED [None]
  - GASTRIC ULCER [None]
